FAERS Safety Report 14938338 (Version 5)
Quarter: 2022Q3

REPORT INFORMATION
  Report Type: Report from Study
  Country: US (occurrence: None)
  Receive Date: 20180525
  Receipt Date: 20220811
  Transmission Date: 20221026
  Serious: Yes (Death, Hospitalization)
  Sender: FDA-Public Use
  Company Number: US-ROCHE-2127269

PATIENT
  Age: 54 Year
  Sex: Male
  Weight: 95.1 kg

DRUGS (18)
  1. COBIMETINIB [Suspect]
     Active Substance: COBIMETINIB
     Indication: Langerhans^ cell histiocytosis
     Dosage: CYCLE 1
     Route: 048
     Dates: start: 20180514, end: 20180517
  2. AMLODIPINE [Concomitant]
     Active Substance: AMLODIPINE BESYLATE
  3. ATOVAQUONE [Concomitant]
     Active Substance: ATOVAQUONE
     Dosage: 750 MG/5 ML
  4. BENZONATATE [Concomitant]
     Active Substance: BENZONATATE
  5. DESMOPRESSIN [Concomitant]
     Active Substance: DESMOPRESSIN
  6. DOCUSATE SODIUM [Concomitant]
     Active Substance: DOCUSATE SODIUM
  7. FERROUS SULFATE [Concomitant]
     Active Substance: FERROUS SULFATE
  8. HUMALOG [Concomitant]
     Active Substance: INSULIN LISPRO
     Dosage: FORM STRENGTH: 100 UNITS/ML?DOSE: 7 UNITS
  9. HYDROCORTISONE [Concomitant]
     Active Substance: HYDROCORTISONE
     Dosage: 15 MG IN THE MORNING AND 10 MG IN THE AFTERNOON
  10. LEVEMIR [Concomitant]
     Active Substance: INSULIN DETEMIR
     Dosage: 100 UNITS/ML
     Route: 058
  11. LEVOTHYROXINE [Concomitant]
     Active Substance: LEVOTHYROXINE
  12. MONTELUKAST [Concomitant]
     Active Substance: MONTELUKAST SODIUM
  13. OXYCODONE [Concomitant]
     Active Substance: OXYCODONE
  14. POLYETHYLENE GLYCOL 3350 [Concomitant]
     Active Substance: POLYETHYLENE GLYCOL 3350
     Route: 048
  15. ROSUVASTATIN [Concomitant]
     Active Substance: ROSUVASTATIN
  16. SENNA [Concomitant]
     Active Substance: SENNA LEAF\SENNOSIDES\SENNOSIDES A AND B
  17. TESTOSTERONE CYPIONATE [Concomitant]
     Active Substance: TESTOSTERONE CYPIONATE
     Dosage: 200 MG/ML
     Route: 030
  18. VALSARTAN [Concomitant]
     Active Substance: VALSARTAN

REACTIONS (4)
  - Acute kidney injury [Unknown]
  - Hypotension [Unknown]
  - Pneumonia [Fatal]
  - Sepsis [Fatal]

NARRATIVE: CASE EVENT DATE: 20180517
